FAERS Safety Report 7371751-4 (Version None)
Quarter: 2011Q1

REPORT INFORMATION
  Report Type: 
  Country: None (occurrence: None)
  Receive Date: 20110324
  Receipt Date: 20110315
  Transmission Date: 20110831
  Serious: Yes (Other)
  Sender: FDA-Public Use
  Company Number: US-ROCHE-763623

PATIENT
  Age: 91 Year
  Sex: Male

DRUGS (3)
  1. VITAMIN D [Concomitant]
  2. BONIVA [Suspect]
     Indication: OSTEOPOROSIS
     Route: 065
  3. CALCIUM [Concomitant]

REACTIONS (2)
  - FALL [None]
  - BLADDER CANCER [None]
